FAERS Safety Report 10951501 (Version 1)
Quarter: 2015Q1

REPORT INFORMATION
  Report Type: Spontaneous
  Country: BR (occurrence: BR)
  Receive Date: 20150324
  Receipt Date: 20150324
  Transmission Date: 20150721
  Serious: Yes (Hospitalization)
  Sender: FDA-Public Use
  Company Number: PHHY2015BR035424

PATIENT
  Age: 36 Year
  Sex: Female
  Weight: 70 kg

DRUGS (12)
  1. LEXAPRO [Concomitant]
     Active Substance: ESCITALOPRAM OXALATE
     Indication: PANIC ATTACK
  2. CARBOLITIUM [Concomitant]
     Active Substance: LITHIUM CARBONATE
     Indication: PANIC ATTACK
  3. CARBOLITIUM [Concomitant]
     Active Substance: LITHIUM CARBONATE
     Indication: PHOBIA
  4. SEROQUEL [Concomitant]
     Active Substance: QUETIAPINE FUMARATE
     Indication: DEPRESSION
     Dosage: 1 DF, TID
     Route: 065
  5. CARBOLITIUM [Concomitant]
     Active Substance: LITHIUM CARBONATE
     Indication: DEPRESSION
     Dosage: 1.5 DF, QD
     Route: 065
  6. LEPONEX [Suspect]
     Active Substance: CLOZAPINE
     Indication: DEPRESSION
     Dosage: 1 DF, QHS
     Route: 065
  7. LEPONEX [Suspect]
     Active Substance: CLOZAPINE
     Indication: PANIC ATTACK
  8. SEROQUEL [Concomitant]
     Active Substance: QUETIAPINE FUMARATE
     Indication: PANIC ATTACK
  9. SEROQUEL [Concomitant]
     Active Substance: QUETIAPINE FUMARATE
     Indication: PHOBIA
  10. LEPONEX [Suspect]
     Active Substance: CLOZAPINE
     Indication: PHOBIA
  11. LEXAPRO [Concomitant]
     Active Substance: ESCITALOPRAM OXALATE
     Indication: DEPRESSION
     Dosage: 1 DF, BID
     Route: 065
  12. LEXAPRO [Concomitant]
     Active Substance: ESCITALOPRAM OXALATE
     Indication: PHOBIA

REACTIONS (5)
  - Mood altered [Recovering/Resolving]
  - Hallucination, auditory [Recovering/Resolving]
  - Product use issue [Unknown]
  - Malaise [Recovering/Resolving]
  - Phobia [Recovering/Resolving]
